FAERS Safety Report 5683909-0 (Version None)
Quarter: 2008Q1

REPORT INFORMATION
  Report Type: 
  Country: None (occurrence: None)
  Receive Date: 20080328
  Receipt Date: 20080319
  Transmission Date: 20080703
  Serious: Yes (Hospitalization, Other)
  Sender: FDA-Public Use
  Company Number: US-ROCHE-495934

PATIENT
  Age: 35 Year
  Sex: Female
  Weight: 87.1 kg

DRUGS (5)
  1. ACCUTANE [Suspect]
     Dosage: REPORTED AS 40MG PO BID
     Route: 048
     Dates: start: 20040802, end: 20040831
  2. ACCUTANE [Suspect]
     Dosage: REPORTED AS 40MG QD
     Route: 048
     Dates: start: 20040901, end: 20041025
  3. ACCUTANE [Suspect]
     Dosage: REPORTED AS 40MG PO BID
     Route: 048
     Dates: start: 20041026, end: 20041104
  4. ACCUTANE [Suspect]
     Dosage: REPORTED AS 60MG PO OD
     Route: 048
     Dates: start: 20041105, end: 20050101
  5. IBUPROFEN [Concomitant]
     Route: 048
     Dates: start: 20050101

REACTIONS (36)
  - ANXIETY [None]
  - ARTHRITIS [None]
  - ASTHMA [None]
  - BIPOLAR DISORDER [None]
  - BRONCHIAL HYPERREACTIVITY [None]
  - CARDIAC DISORDER [None]
  - CHOLECYSTITIS [None]
  - DEPRESSION [None]
  - DIZZINESS [None]
  - GALLBLADDER DISORDER [None]
  - GASTRITIS [None]
  - GASTROENTERITIS [None]
  - GASTROINTESTINAL DISORDER [None]
  - GOUT [None]
  - HEADACHE [None]
  - HEPATIC CONGESTION [None]
  - HEPATIC ENZYME INCREASED [None]
  - HEPATOMEGALY [None]
  - HYDRONEPHROSIS [None]
  - LIVER DISORDER [None]
  - LYMPHADENOPATHY [None]
  - MITRAL VALVE INCOMPETENCE [None]
  - MITRAL VALVE PROLAPSE [None]
  - MONOCYTE COUNT DECREASED [None]
  - NIGHT BLINDNESS [None]
  - PALPITATIONS [None]
  - PANIC ATTACK [None]
  - PULMONARY VALVE INCOMPETENCE [None]
  - RENAL DISORDER [None]
  - RENAL LIPOMATOSIS [None]
  - SINUS BRADYCARDIA [None]
  - SPLENOMEGALY [None]
  - TRICUSPID VALVE INCOMPETENCE [None]
  - TRIGEMINAL NEURALGIA [None]
  - VENTRICULAR EXTRASYSTOLES [None]
  - VENTRICULAR HYPERTROPHY [None]
